FAERS Safety Report 8543698-9 (Version None)
Quarter: 2012Q3

REPORT INFORMATION
  Report Type: 
  Country: None (occurrence: None)
  Receive Date: 20120727
  Receipt Date: 20120719
  Transmission Date: 20120928
  Serious: Yes (Other)
  Sender: FDA-Public Use
  Company Number: US-JNJFOC-20120709861

PATIENT
  Age: 33 Year
  Sex: Female

DRUGS (3)
  1. MESALAMINE [Concomitant]
     Route: 065
  2. INFLIXIMAB, RECOMBINANT [Suspect]
     Indication: CROHN'S DISEASE
     Route: 042
  3. BUDESONIDE [Concomitant]
     Route: 065

REACTIONS (2)
  - BASAL CELL CARCINOMA [None]
  - MATERNAL EXPOSURE DURING PREGNANCY [None]
